FAERS Safety Report 7797156-X (Version None)
Quarter: 2011Q4

REPORT INFORMATION
  Report Type: 
  Country: None (occurrence: None)
  Receive Date: 20111003
  Receipt Date: 20110920
  Transmission Date: 20120403
  Serious: Yes (Other)
  Sender: FDA-Public Use
  Company Number: 2011MA013594

PATIENT
  Age: 53 Year
  Sex: Female

DRUGS (6)
  1. PREMPAK [Concomitant]
  2. NAPROXEN [Suspect]
     Indication: JOINT INJURY
     Dosage: 500 MG; BID; PO
     Route: 048
     Dates: start: 20110619, end: 20110630
  3. BENDROFLUMETHIAZIDE [Concomitant]
  4. CHLORAMPHENICOL [Suspect]
     Indication: OCULAR HYPERAEMIA
     Dates: start: 20110706
  5. ENALAPRIL MALEATE [Concomitant]
  6. HYPROMELLOSE [Concomitant]

REACTIONS (4)
  - PANCYTOPENIA [None]
  - DIZZINESS [None]
  - ANAEMIA [None]
  - MALAISE [None]
